FAERS Safety Report 22780729 (Version 6)
Quarter: 2023Q4

REPORT INFORMATION
  Report Type: Report from Study
  Country: AU (occurrence: AU)
  Receive Date: 20230803
  Receipt Date: 20231115
  Transmission Date: 20240110
  Serious: Yes (Hospitalization, Other)
  Sender: FDA-Public Use
  Company Number: AU-AMGEN-AUSCT2023135396

PATIENT
  Age: 72 Year
  Sex: Male
  Weight: 79.2 kg

DRUGS (21)
  1. CARFILZOMIB [Suspect]
     Active Substance: CARFILZOMIB
     Indication: Plasma cell myeloma refractory
     Dosage: 94 MILLIGRAM, DAYS 1, 8, 15  AND 16 OF EACH 28-DAY CYCLE
     Route: 042
     Dates: start: 20220519, end: 20230719
  2. CARFILZOMIB [Suspect]
     Active Substance: CARFILZOMIB
     Dosage: 94 MILLIGRAM, DAYS 1, 8, 15  AND 16 OF EACH 28-DAY CYCLE
     Route: 042
     Dates: start: 20230816, end: 20230823
  3. VENETOCLAX [Suspect]
     Active Substance: VENETOCLAX
     Indication: Plasma cell myeloma refractory
     Dosage: 400 MILLIGRAM, QD
     Route: 048
     Dates: start: 20220519, end: 20230725
  4. VENETOCLAX [Suspect]
     Active Substance: VENETOCLAX
     Dosage: 200 MILLIGRAM, QD
     Route: 048
     Dates: start: 20230814, end: 20230830
  5. VENETOCLAX [Suspect]
     Active Substance: VENETOCLAX
     Dosage: 200 MILLIGRAM, QD
     Route: 048
     Dates: start: 20230909
  6. DEXAMETHASONE [Suspect]
     Active Substance: DEXAMETHASONE
     Indication: Plasma cell myeloma refractory
     Dosage: 40 MILLIGRAM, DAYS 1, 8, 15, AND 22 OF EACH 28-DAY CYCLE
     Route: 048
     Dates: start: 20220519, end: 20230719
  7. DEXAMETHASONE [Suspect]
     Active Substance: DEXAMETHASONE
     Dosage: 40 MILLIGRAM, DAYS 1, 8, 15, AND 22 OF EACH 28-DAY CYCLE
     Route: 048
     Dates: start: 20230816, end: 20230830
  8. Betavit [Concomitant]
     Indication: Supplementation therapy
     Dosage: 100 MILLIGRAM, Q3WK
     Dates: start: 2016
  9. CADIVAST [Concomitant]
     Indication: Blood cholesterol increased
     Dosage: 80 MILLIGRAM, QD
     Dates: start: 2019
  10. Cal 600 [Concomitant]
     Indication: Supplementation therapy
     Dosage: 1.5 MILLIGRAM, QD
     Dates: start: 202101
  11. DOSTINEX [Concomitant]
     Active Substance: CABERGOLINE
     Indication: Prolactin-producing pituitary tumour
     Dosage: 0.5 MILLIGRAM, Q2WK
     Dates: start: 2016
  12. ESCITALOPRAM [Concomitant]
     Active Substance: ESCITALOPRAM OXALATE
     Indication: Anxiety
     Dosage: 10 MILLIGRAM, QD
     Dates: start: 20210628
  13. VITAMIN D NOS [Concomitant]
     Active Substance: VITAMIN D NOS
     Indication: Supplementation therapy
     Dosage: 1000 MILLIGRAM, QD
     Dates: start: 202101
  14. PANTOPRAZOLE [Concomitant]
     Active Substance: PANTOPRAZOLE
     Indication: Gastrooesophageal reflux disease
     Dosage: 40 MILLIGRAM, QD
     Dates: start: 2018
  15. SULFAMETHOXAZOLE\TRIMETHOPRIM [Concomitant]
     Active Substance: SULFAMETHOXAZOLE\TRIMETHOPRIM
     Indication: Antibiotic prophylaxis
     Dosage: 1 DOSAGE FORM, Q2WK
     Dates: start: 20190711
  16. Sandoz paracetamol [Concomitant]
     Indication: Arthralgia
     Dosage: 1000 MILLIGRAM, TID
     Dates: start: 202109
  17. VALACYCLOVIR [Concomitant]
     Active Substance: VALACYCLOVIR HYDROCHLORIDE
     Indication: Antiviral prophylaxis
     Dosage: 500 MILLIGRAM, QD
     Dates: start: 20190626
  18. METOCLOPRAMIDE [Concomitant]
     Active Substance: METOCLOPRAMIDE
     Indication: Nausea
     Dosage: 10 MILLIGRAM, AS NECESSARY
     Dates: start: 20220523
  19. BISOPROLOL [Concomitant]
     Active Substance: BISOPROLOL\BISOPROLOL FUMARATE
     Indication: Atrial fibrillation
     Dosage: 2.5 MILLIGRAM, QD
     Dates: start: 20230209
  20. BISOPROLOL [Concomitant]
     Active Substance: BISOPROLOL\BISOPROLOL FUMARATE
     Indication: Ejection fraction decreased
  21. APIXABAN [Concomitant]
     Active Substance: APIXABAN
     Indication: Atrial fibrillation
     Dosage: 5 MILLIGRAM, BID
     Dates: start: 20230221

REACTIONS (2)
  - Escherichia bacteraemia [Recovered/Resolved]
  - Cellulitis [Recovered/Resolved]

NARRATIVE: CASE EVENT DATE: 20230724
